FAERS Safety Report 4984814-5 (Version None)
Quarter: 2006Q2

REPORT INFORMATION
  Report Type: 
  Country: None (occurrence: None)
  Receive Date: 20060427
  Receipt Date: 20060417
  Transmission Date: 20061013
  Serious: Yes (Other)
  Sender: FDA-Public Use
  Company Number: US-BRISTOL-MYERS SQUIBB COMPANY-13349758

PATIENT
  Sex: Male

DRUGS (1)
  1. PARAPLATIN AQ [Suspect]
     Indication: TESTIS CANCER
     Route: 042

REACTIONS (6)
  - ABDOMINAL DISTENSION [None]
  - ABDOMINAL PAIN UPPER [None]
  - FATIGUE [None]
  - INTESTINAL FUNCTIONAL DISORDER [None]
  - LOSS OF CONSCIOUSNESS [None]
  - NAUSEA [None]
